FAERS Safety Report 9006564 (Version 2)
Quarter: 2013Q1

REPORT INFORMATION
  Report Type: Spontaneous
  Country: US (occurrence: US)
  Receive Date: 20130110
  Receipt Date: 20130118
  Transmission Date: 20140127
  Serious: Yes (Hospitalization, Other)
  Sender: FDA-Public Use
  Company Number: PHEH2013US000861

PATIENT
  Sex: Female

DRUGS (6)
  1. AFINITOR [Suspect]
     Dosage: 10 MG
     Route: 048
  2. AFINITOR [Suspect]
     Dosage: 5 MG
  3. XANAX [Suspect]
  4. OXYCONTIN [Suspect]
  5. WARFARIN [Concomitant]
  6. DIGOXIN [Concomitant]

REACTIONS (7)
  - Pneumatosis [Unknown]
  - Chest pain [Unknown]
  - Dyspnoea [Unknown]
  - Head discomfort [None]
  - Malaise [Unknown]
  - Anxiety [Unknown]
  - Oedema peripheral [Unknown]
